FAERS Safety Report 12431934 (Version 1)
Quarter: 2016Q2

REPORT INFORMATION
  Report Type: Spontaneous
  Country: US (occurrence: None)
  Receive Date: 20160602
  Receipt Date: 20160602
  Transmission Date: 20160815
  Serious: Yes (Disabling, Other)
  Sender: FDA-Public Use
  Company Number: None

PATIENT
  Age: 45 Year
  Sex: Male
  Weight: 142.88 kg

DRUGS (8)
  1. AMLOPINE [Concomitant]
  2. FLUXUTINE [Concomitant]
  3. PRAVASTATIN SODIUM, 40 MG GLENMARK PHARMA [Suspect]
     Active Substance: PRAVASTATIN SODIUM
     Indication: BLOOD CHOLESTEROL
     Dosage: 1 TABLET(S) AT BEDTIME TAKEN BY MOUTH
     Route: 048
     Dates: start: 20160405, end: 20160503
  4. CANE [Concomitant]
  5. SEROQUEL [Concomitant]
     Active Substance: QUETIAPINE FUMARATE
  6. KNEE BRACES [Concomitant]
  7. LIGAMENT LEG BRACE [Concomitant]
  8. MIRTZAPINE [Concomitant]

REACTIONS (1)
  - Myalgia [None]

NARRATIVE: CASE EVENT DATE: 20160502
